FAERS Safety Report 8791017 (Version 1)
Quarter: 2012Q4

REPORT INFORMATION
  Report Type: Spontaneous
  Country: US (occurrence: None)
  Receive Date: 20120907
  Receipt Date: 20120907
  Transmission Date: 20130627
  Serious: Yes (Hospitalization)
  Sender: FDA-Public Use
  Company Number: USA/USA/12/0025659

PATIENT
  Age: 26 Year
  Sex: Female
  Weight: 61.24 kg

DRUGS (1)
  1. FEBOFENADINE HYDROCHLORIDE AND PSEUDOEPHEDRINE HYDROCHLORIDE [Suspect]
     Indication: ALLERGY
     Route: 048
     Dates: start: 20120827

REACTIONS (7)
  - Malaise [None]
  - Gastrooesophageal reflux disease [None]
  - Cough [None]
  - Pain [None]
  - Somnolence [None]
  - Asthenia [None]
  - Dysstasia [None]
